FAERS Safety Report 15647958 (Version 1)
Quarter: 2018Q4

REPORT INFORMATION
  Report Type: Spontaneous
  Country: JP (occurrence: JP)
  Receive Date: 20181122
  Receipt Date: 20181122
  Transmission Date: 20190205
  Serious: Yes (Hospitalization)
  Sender: FDA-Public Use
  Company Number: JP-PFIZER INC-2018308451

PATIENT
  Age: 46 Year
  Sex: Female
  Weight: 81 kg

DRUGS (1)
  1. CABASER 0.25MG [Suspect]
     Active Substance: CABERGOLINE
     Indication: PROLACTIN-PRODUCING PITUITARY TUMOUR
     Dosage: 0.5 MG, 2X/WEEK
     Route: 048
     Dates: start: 2005

REACTIONS (2)
  - Blood growth hormone decreased [Unknown]
  - Insulin-like growth factor decreased [Unknown]

NARRATIVE: CASE EVENT DATE: 20170726
